FAERS Safety Report 4726964-4 (Version None)
Quarter: 2005Q3

REPORT INFORMATION
  Report Type: 
  Country: None (occurrence: None)
  Receive Date: 20050728
  Receipt Date: 20050720
  Transmission Date: 20060218
  Serious: Yes (Hospitalization)
  Sender: FDA-Public Use
  Company Number: NL-BRISTOL-MYERS SQUIBB COMPANY-13044854

PATIENT
  Age: 41 Year
  Sex: Female

DRUGS (3)
  1. TAXOL [Suspect]
     Dates: start: 20050415
  2. FLUOROURACIL [Suspect]
     Dates: start: 20050415
  3. LEUCOVORIN [Suspect]
     Dates: start: 20050415

REACTIONS (2)
  - CONFUSIONAL STATE [None]
  - CONVULSION [None]
